FAERS Safety Report 6530010-X (Version None)
Quarter: 2010Q1

REPORT INFORMATION
  Report Type: 
  Country: None (occurrence: None)
  Receive Date: 20100107
  Receipt Date: 20091230
  Transmission Date: 20100710
  Serious: Yes (Other)
  Sender: FDA-Public Use
  Company Number: GXKR2008GB03134

PATIENT
  Age: 64 Year
  Sex: Female
  Weight: 63.8 kg

DRUGS (3)
  1. WARFARIN (NGX) [Suspect]
     Indication: PULMONARY EMBOLISM
     Dosage: 4.5 MG, DAILY
     Route: 048
  2. DASATINIB [Suspect]
     Indication: CHRONIC MYELOID LEUKAEMIA
     Dosage: 50 MG, QD
     Route: 048
     Dates: start: 20061227, end: 20071219
  3. DASATINIB [Suspect]
     Dosage: 100 MG, QD
     Route: 048
     Dates: end: 20071219

REACTIONS (3)
  - DYSPNOEA [None]
  - PULMONARY EMBOLISM [None]
  - PULMONARY HYPERTENSION [None]
